FAERS Safety Report 5073387-7 (Version None)
Quarter: 2006Q3

REPORT INFORMATION
  Report Type: 
  Country: None (occurrence: None)
  Receive Date: 20060717
  Receipt Date: 20060223
  Transmission Date: 20061208
  Serious: No
  Sender: FDA-Public Use
  Company Number: 2006000442

PATIENT
  Age: 67 Year
  Sex: Female
  Weight: 79.3795 kg

DRUGS (2)
  1. TARCEVA [Suspect]
     Indication: PANCREATIC CARCINOMA
     Dosage: 100 MG (QD), ORAL
     Route: 048
  2. GEMCITABINE [Concomitant]

REACTIONS (3)
  - ACNE PUSTULAR [None]
  - PHOTOPHOBIA [None]
  - RASH PRURITIC [None]
